FAERS Safety Report 8525628-9 (Version None)
Quarter: 2012Q3

REPORT INFORMATION
  Report Type: 
  Country: None (occurrence: None)
  Receive Date: 20120720
  Receipt Date: 20120716
  Transmission Date: 20120928
  Serious: Yes (Hospitalization)
  Sender: FDA-Public Use
  Company Number: TR-PFIZER INC-2012012065

PATIENT
  Age: 29 Year
  Sex: Female

DRUGS (3)
  1. SERTRALINE HYDROCHLORIDE [Suspect]
     Dosage: UNK
  2. SERTRALINE HYDROCHLORIDE [Suspect]
     Dosage: 15-16 TABLETS OF SERTRALINE AT 18:00 PM ON THE DAY
     Dates: start: 20110101, end: 20110101
  3. SERTRALINE HYDROCHLORIDE [Suspect]
     Dosage: 2 TABLETS
     Dates: start: 20120101, end: 20120101

REACTIONS (6)
  - OVERDOSE [None]
  - VOMITING [None]
  - AMENORRHOEA [None]
  - ARRHYTHMIA [None]
  - BURNING SENSATION [None]
  - LIVER FUNCTION TEST ABNORMAL [None]
